FAERS Safety Report 9699277 (Version 1)
Quarter: 2013Q4

REPORT INFORMATION
  Report Type: Spontaneous
  Country: US (occurrence: US)
  Receive Date: 20131120
  Receipt Date: 20131120
  Transmission Date: 20140711
  Serious: No
  Sender: FDA-Public Use
  Company Number: US-GILEAD-2008-0015364

PATIENT
  Sex: Female
  Weight: 67.13 kg

DRUGS (10)
  1. LETAIRIS [Suspect]
     Indication: PULMONARY ARTERIAL HYPERTENSION
     Route: 048
     Dates: start: 20070927
  2. PHOSLO [Concomitant]
     Route: 048
  3. FOSAMAX [Concomitant]
     Route: 048
  4. LASIX [Concomitant]
     Route: 048
  5. METOLAZONE [Concomitant]
     Route: 048
  6. METOPROLOL [Concomitant]
     Route: 048
  7. POTASSIUM CHLORIDE [Concomitant]
     Route: 048
  8. VITAMIN C [Concomitant]
     Route: 048
  9. IRON [Concomitant]
     Route: 048
  10. CELLCEPT [Concomitant]
     Route: 048

REACTIONS (2)
  - Decreased appetite [None]
  - Pruritus [None]
